FAERS Safety Report 7363780 (Version 2)
Quarter: 2013Q3

REPORT INFORMATION
  Report Type: Spontaneous
  Country: None (occurrence: None)
  Receive Date: 20100412
  Receipt Date: 20130709
  Transmission Date: 20140515
  Serious: Yes (Hospitalization)
  Sender: FDA-Public Use
  Company Number: AUR-APL-2010-01015

PATIENT
  Age: 40 Year
  Sex: Female
  Weight: 55.8 kg

DRUGS (5)
  1. PAROXETINE [Suspect]
     Indication: PANIC DISORDER
     Dosage: ONCE A DAY
     Route: 048
     Dates: start: 20081028, end: 20081103
  2. SENNARIDE (SENNOSIDE A+B) [Concomitant]
  3. HANGEKOUBOKUTOU (HERBAL EXTRACTS NOS) [Concomitant]
  4. BIOFERMIN (BACILLUS SUBTILIS, LACTOBACILLUS ACIDOPHILUS, STREPTOCOCCUS FAECALIS) [Concomitant]
  5. SOLANAX (ALPRAZOLAM) [Concomitant]

REACTIONS (2)
  - Ectopic pregnancy [None]
  - Maternal exposure during pregnancy [None]
